FAERS Safety Report 12721479 (Version 1)
Quarter: 2016Q3

REPORT INFORMATION
  Report Type: Other
  Country: US (occurrence: US)
  Receive Date: 20160907
  Receipt Date: 20160907
  Transmission Date: 20161109
  Serious: No
  Sender: FDA-Public Use
  Company Number: US-COL_22026_2016

PATIENT
  Sex: Female

DRUGS (2)
  1. COLGATE TOTAL ADVANCED WHITENING [Suspect]
     Active Substance: SODIUM FLUORIDE\TRICLOSAN
     Indication: PRODUCT USED FOR UNKNOWN INDICATION
     Dosage: LESS THAN HALF THE HEAD OF THE TOOTHBRUSH/ BID/
     Route: 048
     Dates: start: 201601, end: 201602
  2. COLGATE TOTAL ADVANCED WHITENING [Suspect]
     Active Substance: SODIUM FLUORIDE\TRICLOSAN
     Dosage: LESS THAN HALF THE HEAD OF THE TOOTHBRUSH/ QD/
     Route: 048
     Dates: start: 201601, end: 201601

REACTIONS (1)
  - Oral mucosal eruption [Recovering/Resolving]

NARRATIVE: CASE EVENT DATE: 201601
